FAERS Safety Report 5929943-4 (Version None)
Quarter: 2008Q4

REPORT INFORMATION
  Report Type: 
  Country: None (occurrence: None)
  Receive Date: 20081024
  Receipt Date: 20081014
  Transmission Date: 20090506
  Serious: Yes (Congenital Anomaly)
  Sender: FDA-Public Use
  Company Number: JP-PFIZER INC-2008070380

PATIENT
  Sex: Male

DRUGS (3)
  1. DETRUSITOL LA [Suspect]
     Indication: HYPERTONIC BLADDER
     Route: 048
     Dates: start: 20080208, end: 20080403
  2. FLIVAS [Concomitant]
     Route: 048
     Dates: end: 20080404
  3. TIAPRIDE HYDROCHLORIDE [Concomitant]
     Route: 048

REACTIONS (2)
  - CONDITION AGGRAVATED [None]
  - DEMENTIA [None]
